FAERS Safety Report 8398399-7 (Version None)
Quarter: 2012Q2

REPORT INFORMATION
  Report Type: 
  Country: None (occurrence: None)
  Receive Date: 20120531
  Receipt Date: 20120523
  Transmission Date: 20120825
  Serious: Yes (Other)
  Sender: FDA-Public Use
  Company Number: US-FRI-1000030752

PATIENT
  Sex: Male

DRUGS (1)
  1. DALIRESP [Suspect]

REACTIONS (1)
  - HEART RATE INCREASED [None]
